FAERS Safety Report 4380549-0 (Version None)
Quarter: 2004Q2

REPORT INFORMATION
  Report Type: 
  Country: None (occurrence: None)
  Receive Date: 20040614
  Receipt Date: 20040310
  Transmission Date: 20050107
  Serious: Yes (Hospitalization)
  Sender: FDA-Public Use
  Company Number: M04-341-072

PATIENT
  Age: 71 Year
  Sex: Male
  Weight: 101 kg

DRUGS (5)
  1. VELCADE [Suspect]
     Indication: MANTLE CELL LYMPHOMA
     Dosage: 2.9 MG : INTRAVENOUS BOLUS
     Route: 040
     Dates: start: 20040218, end: 20040301
  2. ALLOPURINOL [Concomitant]
  3. CORTICOSTEROIDS [Concomitant]
  4. FILGRASTIM [Concomitant]
  5. HYDROCODONE W/ACETAMINOPHEN (VICODIN); [Concomitant]

REACTIONS (1)
  - DYSPNOEA [None]
